FAERS Safety Report 10085300 (Version 2)
Quarter: 2014Q2

REPORT INFORMATION
  Report Type: Not Available
  Country: AR (occurrence: AR)
  Receive Date: 20140417
  Receipt Date: 20140512
  Transmission Date: 20141212
  Serious: Yes (Death, Hospitalization)
  Sender: FDA-Public Use
  Company Number: AR-ONYX-2014-0839

PATIENT
  Sex: Female

DRUGS (3)
  1. KYPROLIS [Suspect]
     Indication: PLASMA CELL MYELOMA
     Route: 042
     Dates: start: 20131111, end: 20131111
  2. DEXAMETHASONE [Concomitant]
     Indication: PLASMA CELL MYELOMA
     Route: 042
     Dates: start: 20131111, end: 20131111
  3. MELFALAN [Concomitant]
     Indication: PLASMA CELL MYELOMA
     Route: 042
     Dates: start: 20131111, end: 20131114

REACTIONS (3)
  - Haematemesis [Fatal]
  - Neck pain [Unknown]
  - Haemoptysis [Unknown]
